FAERS Safety Report 23264429 (Version 1)
Quarter: 2023Q4

REPORT INFORMATION
  Report Type: Spontaneous
  Country: US (occurrence: US)
  Receive Date: 20231205
  Receipt Date: 20231205
  Transmission Date: 20240110
  Serious: No
  Sender: FDA-Public Use
  Company Number: US-ELI_LILLY_AND_COMPANY-US202312000967

PATIENT
  Sex: Female

DRUGS (1)
  1. EMGALITY [Suspect]
     Active Substance: GALCANEZUMAB-GNLM
     Indication: Vestibular migraine
     Dosage: 120 MG, UNKNOWN
     Route: 065
     Dates: start: 202302

REACTIONS (2)
  - Malaise [Unknown]
  - Product dose omission issue [Unknown]
